FAERS Safety Report 24130616 (Version 8)
Quarter: 2025Q2

REPORT INFORMATION
  Report Type: Report from Study
  Country: JP (occurrence: JP)
  Receive Date: 20240724
  Receipt Date: 20250630
  Transmission Date: 20250716
  Serious: Yes (Hospitalization)
  Sender: RIGEL PHARMACEUTICALS
  Company Number: JP-RIGEL Pharmaceuticals, INC-20240700082

PATIENT
  Age: 74 Year
  Sex: Female
  Weight: 64 kg

DRUGS (21)
  1. FOSTAMATINIB DISODIUM [Suspect]
     Active Substance: FOSTAMATINIB DISODIUM
     Indication: Immune thrombocytopenia
     Dosage: 100 MG, BID
     Route: 048
     Dates: start: 20230612, end: 20230912
  2. FOSTAMATINIB DISODIUM [Suspect]
     Active Substance: FOSTAMATINIB DISODIUM
     Dosage: 100 MG, QD
     Route: 048
     Dates: start: 20230919, end: 20240108
  3. FOSTAMATINIB DISODIUM [Suspect]
     Active Substance: FOSTAMATINIB DISODIUM
     Dosage: 100 MG, BID
     Route: 048
     Dates: start: 20240109, end: 20240916
  4. FOSTAMATINIB DISODIUM [Suspect]
     Active Substance: FOSTAMATINIB DISODIUM
     Dosage: 100 MG, QD
     Route: 048
     Dates: start: 20240917
  5. EMPAGLIFLOZIN\LINAGLIPTIN [Suspect]
     Active Substance: EMPAGLIFLOZIN\LINAGLIPTIN
     Indication: Diabetes mellitus
     Route: 048
     Dates: start: 20240820, end: 20241203
  6. ROMIPLOSTIM [Suspect]
     Active Substance: ROMIPLOSTIM
     Indication: Immune thrombocytopenia
     Dosage: 500MCG, QW
     Route: 058
     Dates: end: 20230926
  7. PREDNISOLONE [Concomitant]
     Active Substance: PREDNISOLONE
     Indication: Immune thrombocytopenia
     Dosage: 7.5MG, QD
     Route: 048
     Dates: start: 20230926
  8. PREDNISOLONE [Concomitant]
     Active Substance: PREDNISOLONE
     Dosage: 20 MG, QD
     Route: 048
     Dates: end: 20230618
  9. PREDNISOLONE [Concomitant]
     Active Substance: PREDNISOLONE
     Dosage: 15MG, QD
     Route: 048
     Dates: start: 20230619, end: 20230802
  10. PREDNISOLONE [Concomitant]
     Active Substance: PREDNISOLONE
     Dosage: 12.5MG, QD
     Route: 048
     Dates: start: 20230803, end: 20230814
  11. PREDNISOLONE [Concomitant]
     Active Substance: PREDNISOLONE
     Dosage: 10MG, QD
     Route: 048
     Dates: start: 20230815, end: 20230925
  12. PREDNISOLONE [Concomitant]
     Active Substance: PREDNISOLONE
     Dosage: 7.5MG QD
     Route: 048
     Dates: start: 20230926, end: 20240401
  13. PREDNISOLONE [Concomitant]
     Active Substance: PREDNISOLONE
     Dosage: 5 MG QD
     Route: 048
     Dates: start: 20240402
  14. RITUXIMAB [Suspect]
     Active Substance: RITUXIMAB
     Indication: Immune thrombocytopenia
     Route: 041
  15. DANAZOL [Concomitant]
     Active Substance: DANAZOL
     Indication: Immune thrombocytopenia
     Dosage: 400 MG, QD
     Route: 048
     Dates: start: 20230622, end: 20230828
  16. AMLODIPINE [Concomitant]
     Active Substance: AMLODIPINE BESYLATE
     Indication: Product used for unknown indication
     Route: 048
  17. ROSUVASTATIN [Concomitant]
     Active Substance: ROSUVASTATIN
     Indication: Product used for unknown indication
     Route: 048
  18. ATOVAQUONE [Concomitant]
     Active Substance: ATOVAQUONE
     Indication: Product used for unknown indication
     Route: 048
  19. LANSOPRAZOLE [Concomitant]
     Active Substance: LANSOPRAZOLE
     Indication: Product used for unknown indication
     Route: 048
  20. LINAGLIPTIN [Concomitant]
     Active Substance: LINAGLIPTIN
     Indication: Product used for unknown indication
     Route: 048
  21. DAPAGLIFLOZIN PROPANEDIOL [Concomitant]
     Active Substance: DAPAGLIFLOZIN PROPANEDIOL
     Indication: Product used for unknown indication
     Route: 048

REACTIONS (4)
  - Gastrointestinal haemorrhage [Recovered/Resolved]
  - Cytomegalovirus infection [Recovered/Resolved]
  - Hepatic function abnormal [Recovered/Resolved]
  - Hepatic function abnormal [Recovered/Resolved]

NARRATIVE: CASE EVENT DATE: 20230630
